FAERS Safety Report 8133476-7 (Version None)
Quarter: 2012Q1

REPORT INFORMATION
  Report Type: 
  Country: None (occurrence: None)
  Receive Date: 20120213
  Receipt Date: 20120206
  Transmission Date: 20120608
  Serious: Yes (Other)
  Sender: FDA-Public Use
  Company Number: BR-PFIZER INC-2012032789

PATIENT
  Age: 52 Year
  Sex: Female

DRUGS (3)
  1. SIMVASTATIN [Concomitant]
     Indication: BLOOD CHOLESTEROL
     Dosage: UNKNOWN DOSE, 1X/DAY
     Dates: start: 20100101, end: 20120101
  2. CELEBREX [Suspect]
     Indication: TENDONITIS
  3. CELEBREX [Suspect]
     Indication: PAIN
     Dosage: UNKNOWN DOSE, 1-2X/DAY
     Route: 048
     Dates: start: 20030101

REACTIONS (1)
  - CARPAL TUNNEL SYNDROME [None]
